FAERS Safety Report 11180397 (Version 1)
Quarter: 2015Q2

REPORT INFORMATION
  Report Type: Report from Study
  Country: UG (occurrence: None)
  Receive Date: 20150609
  Receipt Date: 20150609
  Transmission Date: 20150821
  Serious: Yes (Hospitalization, Other)
  Sender: FDA-Public Use
  Company Number: UG2015GSK056741

PATIENT
  Age: 28 Year
  Sex: Female

DRUGS (7)
  1. CO-TRIMOXAZOLE (SULFAMETHOXAZOLE + TRIMETHOPRIM) [Concomitant]
  2. ISONIAZID (ISONIAZID) [Concomitant]
     Active Substance: ISONIAZID
  3. LAMIVUDINE. [Suspect]
     Active Substance: LAMIVUDINE
     Indication: HIV INFECTION
     Dates: start: 20150224, end: 20150401
  4. ALUVIA (LOPINAVIR + RITONAVIR) [Concomitant]
  5. PYRIDOXINE (PYRIDOXINE) [Concomitant]
  6. FEFOL (CYANOCOBALAMIN + FERROUS FUMARATE + FOLIC ACID) (CYANOCOBALAMIN + FERROUS FUMARATE + FOLIC ACID) [Concomitant]
  7. ZIDOVUDINE. [Suspect]
     Active Substance: ZIDOVUDINE
     Indication: HIV INFECTION
     Dates: start: 20150224, end: 20150401

REACTIONS (10)
  - Asthenia [None]
  - Fatigue [None]
  - Normochromic normocytic anaemia [None]
  - Abscess [None]
  - Blood pressure decreased [None]
  - Dizziness [None]
  - Palpitations [None]
  - Platelet count decreased [None]
  - Anaemia [None]
  - Neutropenia [None]

NARRATIVE: CASE EVENT DATE: 20150318
